FAERS Safety Report 21804284 (Version 1)
Quarter: 2023Q1

REPORT INFORMATION
  Report Type: Report from Study
  Country: US (occurrence: US)
  Receive Date: 20230102
  Receipt Date: 20230102
  Transmission Date: 20230418
  Serious: No
  Sender: FDA-Public Use
  Company Number: US-ABBVIE-4203351

PATIENT
  Age: 51 Year
  Sex: Male

DRUGS (1)
  1. RINVOQ [Suspect]
     Active Substance: UPADACITINIB
     Indication: Rheumatoid arthritis
     Route: 048
     Dates: start: 20220809

REACTIONS (3)
  - Aphonia [Recovered/Resolved]
  - Mood swings [Not Recovered/Not Resolved]
  - Arthralgia [Recovering/Resolving]

NARRATIVE: CASE EVENT DATE: 20221001
